FAERS Safety Report 6537873-2 (Version None)
Quarter: 2010Q1

REPORT INFORMATION
  Report Type: 
  Country: None (occurrence: None)
  Receive Date: 20100114
  Receipt Date: 20100107
  Transmission Date: 20100710
  Serious: Yes (Hospitalization, Other)
  Sender: FDA-Public Use
  Company Number: US-AMGEN-QUU384301

PATIENT
  Sex: Male

DRUGS (1)
  1. ENBREL [Suspect]
     Indication: PSORIATIC ARTHROPATHY
     Route: 058
     Dates: start: 20090513

REACTIONS (6)
  - BLOOD PRESSURE INCREASED [None]
  - GROIN PAIN [None]
  - HEART RATE INCREASED [None]
  - INJECTION SITE PAIN [None]
  - PALPITATIONS [None]
  - UMBILICAL HERNIA [None]
